FAERS Safety Report 7991733-9 (Version None)
Quarter: 2011Q4

REPORT INFORMATION
  Report Type: 
  Country: None (occurrence: None)
  Receive Date: 20111219
  Receipt Date: 20111209
  Transmission Date: 20120403
  Serious: Yes (Other)
  Sender: FDA-Public Use
  Company Number: PHHY2010US53964

PATIENT
  Sex: Female

DRUGS (4)
  1. NEURONTIN [Concomitant]
     Dosage: 400 MG, TID
  2. IBUPROFEN [Concomitant]
     Dosage: 600 MG, UNK
  3. EXTAVIA [Suspect]
     Indication: MULTIPLE SCLEROSIS
     Dosage: 0.25 MG, QOD
     Route: 058
     Dates: start: 20100128
  4. GOODYS [Concomitant]

REACTIONS (6)
  - WEIGHT INCREASED [None]
  - ROAD TRAFFIC ACCIDENT [None]
  - INJECTION SITE ERYTHEMA [None]
  - INJECTION SITE PAIN [None]
  - PAIN IN EXTREMITY [None]
  - INJECTION SITE HAEMATOMA [None]
